FAERS Safety Report 9685323 (Version 1)
Quarter: 2013Q4

REPORT INFORMATION
  Report Type: Report from Study
  Country: US (occurrence: US)
  Receive Date: 20131113
  Receipt Date: 20131113
  Transmission Date: 20140711
  Serious: Yes (Hospitalization)
  Sender: FDA-Public Use
  Company Number: US-JNJFOC-20131102521

PATIENT
  Age: 70 Year
  Sex: Male
  Weight: 72.58 kg

DRUGS (11)
  1. REMICADE [Suspect]
     Indication: CROHN^S DISEASE
     Dosage: INITIATED ABOUT 4 TO 5 YEARS PRIOR TO THE DATE OF THIS REPORT
     Route: 042
  2. PREDNISONE [Suspect]
     Indication: CROHN^S DISEASE
     Dosage: CONFLICTINGLY REPORTED AS 5MG, ONCE EVERY OTHER DAY.
     Route: 048
     Dates: start: 1983
  3. COZAAR [Concomitant]
     Indication: BLOOD PRESSURE
     Route: 048
  4. POTASSIUM CHLORIDE [Concomitant]
     Route: 048
  5. LASIX [Concomitant]
     Indication: FLUID RETENTION
     Route: 048
  6. LASIX [Concomitant]
     Indication: SWELLING
     Route: 048
  7. ALLOPURINOL [Concomitant]
     Indication: NEPHROLITHIASIS
     Route: 048
     Dates: start: 2003
  8. MORPHINE [Concomitant]
     Indication: PAIN
     Route: 048
     Dates: start: 1973
  9. LEXAPRO [Concomitant]
     Indication: DEPRESSION
     Route: 048
     Dates: start: 2009
  10. BLOOD PRESSURE MEDICATION NOS [Concomitant]
     Indication: BLOOD PRESSURE
     Route: 048
  11. DILAUDID [Concomitant]
     Indication: PAIN
     Route: 065
     Dates: start: 201310

REACTIONS (5)
  - Osteoarthritis [Unknown]
  - Upper limb fracture [Recovered/Resolved]
  - Fall [Recovered/Resolved]
  - Local swelling [Recovering/Resolving]
  - Impaired healing [Not Recovered/Not Resolved]
